FAERS Safety Report 9507827 (Version 1)
Quarter: 2013Q3

REPORT INFORMATION
  Report Type: Spontaneous
  Country: US (occurrence: US)
  Receive Date: 20130909
  Receipt Date: 20130909
  Transmission Date: 20140515
  Serious: Yes (Other)
  Sender: FDA-Public Use
  Company Number: US-PFIZER INC-2013258051

PATIENT
  Age: 60 Year
  Sex: Female
  Weight: 90.7 kg

DRUGS (1)
  1. ADVIL [Suspect]
     Indication: HEADACHE
     Dosage: 200 MG, AS NEEDED
     Route: 048
     Dates: end: 20130703

REACTIONS (4)
  - Gastric ulcer [Unknown]
  - Rectal haemorrhage [Unknown]
  - Haemoglobin decreased [Unknown]
  - Syncope [Unknown]
